FAERS Safety Report 11667882 (Version 1)
Quarter: 2015Q4

REPORT INFORMATION
  Report Type: Spontaneous
  Country: US (occurrence: US)
  Receive Date: 20151027
  Receipt Date: 20151027
  Transmission Date: 20160304
  Serious: No
  Sender: FDA-Public Use
  Company Number: US-ELI_LILLY_AND_COMPANY-US200912000320

PATIENT
  Sex: Female

DRUGS (3)
  1. TYLENOL ARTHRITIS PAIN [Concomitant]
     Active Substance: ACETAMINOPHEN
  2. FORTEO [Suspect]
     Active Substance: TERIPARATIDE
     Indication: OSTEOPOROSIS
     Dosage: 20 UG, DAILY (1/D)
     Route: 065
     Dates: start: 20090916
  3. FORTEO [Suspect]
     Active Substance: TERIPARATIDE
     Dosage: 20 UG, DAILY (1/D)
     Route: 065

REACTIONS (16)
  - Arthralgia [Unknown]
  - Scar [Unknown]
  - Dysphonia [Unknown]
  - Pain in extremity [Unknown]
  - Visual impairment [Unknown]
  - Weight decreased [Unknown]
  - Muscle spasms [Unknown]
  - Injection site pain [Unknown]
  - Body height decreased [Unknown]
  - Muscular weakness [Unknown]
  - Sciatic nerve injury [Unknown]
  - Decreased appetite [Unknown]
  - Dizziness [Unknown]
  - Back pain [Unknown]
  - Cough [Unknown]
  - Cataract [Unknown]
